FAERS Safety Report 5350762-4 (Version None)
Quarter: 2007Q2

REPORT INFORMATION
  Report Type: 
  Country: None (occurrence: None)
  Receive Date: 20070606
  Receipt Date: 20070606
  Transmission Date: 20071010
  Serious: Yes (Other)
  Sender: FDA-Public Use
  Company Number: None

PATIENT
  Sex: Male
  Weight: 11.25 kg

DRUGS (4)
  1. AMPICILLIN-SULBACTAM 3GM ABRAXIS [Suspect]
     Indication: RECTAL ABSCESS
     Dosage: 560MG-280MG EVERY 8 HOURS IV BOLUS
     Route: 040
     Dates: start: 20070602, end: 20070604
  2. LACTINEX [Concomitant]
  3. IBUPROFEN [Concomitant]
  4. ACETAMINOPHEN [Concomitant]

REACTIONS (3)
  - DISCOMFORT [None]
  - HYPERSENSITIVITY [None]
  - IRRITABILITY [None]
